FAERS Safety Report 9890573 (Version 1)
Quarter: 2014Q1

REPORT INFORMATION
  Report Type: Spontaneous
  Country: TN (occurrence: None)
  Receive Date: 20140210
  Receipt Date: 20140210
  Transmission Date: 20141002
  Serious: Yes (Congenital Anomaly)
  Sender: FDA-Public Use
  Company Number: 2014P1000824

PATIENT
  Sex: 0

DRUGS (1)
  1. VALPROIC ACID [Suspect]

REACTIONS (2)
  - Hydronephrosis [None]
  - Maternal drugs affecting foetus [None]
